FAERS Safety Report 15229972 (Version 2)
Quarter: 2018Q3

REPORT INFORMATION
  Report Type: Report from Study
  Country: DE (occurrence: DE)
  Receive Date: 20180802
  Receipt Date: 20180821
  Transmission Date: 20181010
  Serious: Yes (Hospitalization)
  Sender: FDA-Public Use
  Company Number: DE-TEVA-2018-DE-908990

PATIENT
  Age: 76 Year
  Sex: Female
  Weight: 86 kg

DRUGS (10)
  1. TRASTUZUMAB. [Suspect]
     Active Substance: TRASTUZUMAB
     Route: 042
     Dates: start: 20170921
  2. FLUCLOXACILLIN [Concomitant]
     Active Substance: FLUCLOXACILLIN
     Indication: INFECTION
     Dosage: 2 GRAM DAILY;
     Route: 042
     Dates: start: 20171109, end: 20171122
  3. PACLITAXEL. [Suspect]
     Active Substance: PACLITAXEL
     Indication: BREAST CANCER
     Dosage: 156.8 MG
     Route: 042
     Dates: start: 20170920, end: 20171025
  4. UNACID [Concomitant]
     Indication: INFECTION
     Dosage: 1 MILLIGRAM DAILY;
     Route: 042
     Dates: start: 20171104, end: 20171107
  5. FLUCLOXACILLIN [Concomitant]
     Active Substance: FLUCLOXACILLIN
     Dosage: 12 GRAM DAILY;
     Route: 065
     Dates: start: 20171109, end: 20171122
  6. UNACID [Concomitant]
     Dosage: 3 MILLIGRAM DAILY;
     Route: 042
     Dates: start: 20171104, end: 20171107
  7. PACLITAXEL. [Suspect]
     Active Substance: PACLITAXEL
     Route: 042
     Dates: start: 20170920, end: 20171025
  8. PERTUZUMAB. [Suspect]
     Active Substance: PERTUZUMAB
     Indication: BREAST CANCER
     Route: 042
     Dates: start: 20170920
  9. TRASTUZUMAB. [Suspect]
     Active Substance: TRASTUZUMAB
     Route: 042
     Dates: start: 20170920
  10. CEFUROXIM [Concomitant]
     Active Substance: CEFUROXIME
     Indication: INFECTION
     Dosage: 1.5 MILLIGRAM DAILY;
     Route: 042
     Dates: start: 20171107, end: 20171109

REACTIONS (5)
  - Diarrhoea [Recovered/Resolved]
  - Stomatitis [Recovered/Resolved]
  - Paraesthesia [Not Recovered/Not Resolved]
  - Fatigue [Recovered/Resolved]
  - Constipation [Recovered/Resolved]

NARRATIVE: CASE EVENT DATE: 20170920
